FAERS Safety Report 11984197 (Version 3)
Quarter: 2016Q1

REPORT INFORMATION
  Report Type: Report from Study
  Country: US (occurrence: US)
  Receive Date: 20160201
  Receipt Date: 20160329
  Transmission Date: 20160526
  Serious: No
  Sender: FDA-Public Use
  Company Number: US-AMGEN-USASL2016009128

PATIENT
  Age: 83 Year
  Sex: Female

DRUGS (5)
  1. METHOTREXATE [Concomitant]
     Active Substance: METHOTREXATE
     Dosage: UNK
  2. HUMIRA [Concomitant]
     Active Substance: ADALIMUMAB
     Dosage: UNK
  3. TRAMADOL. [Concomitant]
     Active Substance: TRAMADOL
     Dosage: UNK
  4. ENBREL [Suspect]
     Active Substance: ETANERCEPT
     Indication: PSORIATIC ARTHROPATHY
     Dosage: 50 MG, QWK
     Route: 065
  5. ENBREL [Suspect]
     Active Substance: ETANERCEPT
     Indication: RHEUMATOID ARTHRITIS

REACTIONS (12)
  - Feeling abnormal [Not Recovered/Not Resolved]
  - Nail disorder [Unknown]
  - Foot deformity [Unknown]
  - Joint swelling [Not Recovered/Not Resolved]
  - Bursitis [Unknown]
  - Drug dose omission [Unknown]
  - Psoriasis [Unknown]
  - Finger deformity [Unknown]
  - Tooth disorder [Not Recovered/Not Resolved]
  - Condition aggravated [Unknown]
  - Pain [Unknown]
  - Malaise [Not Recovered/Not Resolved]
